FAERS Safety Report 7241506-X (Version None)
Quarter: 2011Q1

REPORT INFORMATION
  Report Type: 
  Country: None (occurrence: None)
  Receive Date: 20110124
  Receipt Date: 20110113
  Transmission Date: 20110831
  Serious: Yes (Hospitalization)
  Sender: FDA-Public Use
  Company Number: SE-ASTRAZENECA-2010SE53233

PATIENT
  Age: 68 Year
  Sex: Female

DRUGS (7)
  1. LEVOTHYROXINE SODIUM [Concomitant]
  2. SPIRIVA [Concomitant]
  3. ZOMETA [Concomitant]
  4. CALCICHEW-D3 [Concomitant]
  5. FRAGMIN [Concomitant]
  6. ACETYLCYSTEIN ALTERNOVA [Concomitant]
  7. FASLODEX [Suspect]
     Indication: BREAST CANCER
     Route: 030
     Dates: start: 20100910, end: 20101008

REACTIONS (3)
  - LIVER FUNCTION TEST ABNORMAL [None]
  - PAIN IN EXTREMITY [None]
  - INFLUENZA LIKE ILLNESS [None]
